FAERS Safety Report 9475845 (Version 1)
Quarter: 2013Q3

REPORT INFORMATION
  Report Type: Spontaneous
  Country: US (occurrence: None)
  Receive Date: 20130821
  Receipt Date: 20130821
  Transmission Date: 20140515
  Serious: No
  Sender: FDA-Public Use
  Company Number: GAM-199-13-US

PATIENT
  Age: 64 Year
  Sex: Female

DRUGS (1)
  1. OCTAGAM [Suspect]
     Indication: CHRONIC INFLAMMATORY DEMYELINATING POLYRADICULONEUROPATHY
     Dates: start: 20130613, end: 20130613

REACTIONS (2)
  - Chills [None]
  - Chills [None]
